FAERS Safety Report 23802833 (Version 2)
Quarter: 2024Q3

REPORT INFORMATION
  Report Type: Report from Study
  Country: US (occurrence: US)
  Receive Date: 20240501
  Receipt Date: 20240722
  Transmission Date: 20241016
  Serious: Yes (Life-Threatening, Other)
  Sender: ABBVIE
  Company Number: US-ABBVIE-5738624

PATIENT
  Age: 72 Year
  Sex: Female
  Weight: 130 kg

DRUGS (5)
  1. LINZESS [Suspect]
     Active Substance: LINACLOTIDE
     Indication: Product used for unknown indication
     Dosage: FORM STRENGTH: 290 MICROGRAM
     Route: 048
     Dates: start: 202312
  2. AMITIZA [Concomitant]
     Active Substance: LUBIPROSTONE
     Indication: Product used for unknown indication
  3. MOTEGRITY [Concomitant]
     Active Substance: PRUCALOPRIDE SUCCINATE
     Indication: Product used for unknown indication
  4. TRULANCE [Concomitant]
     Active Substance: PLECANATIDE
     Indication: Product used for unknown indication
  5. GOLYTELY [Concomitant]
     Active Substance: POLYETHYLENE GLYCOL 3350\POTASSIUM CHLORIDE\SODIUM BICARBONATE\SODIUM CHLORIDE\SODIUM SULFATE
     Indication: Product used for unknown indication

REACTIONS (6)
  - Suicidal ideation [Unknown]
  - Abdominal pain [Unknown]
  - Stoma creation [Unknown]
  - Lower limb fracture [Unknown]
  - Loss of personal independence in daily activities [Unknown]
  - Upper limb fracture [Unknown]

NARRATIVE: CASE EVENT DATE: 20230601
